FAERS Safety Report 6445207-7 (Version None)
Quarter: 2009Q4

REPORT INFORMATION
  Report Type: 
  Country: None (occurrence: None)
  Receive Date: 20091118
  Receipt Date: 20090831
  Transmission Date: 20100525
  Serious: No
  Sender: FDA-Public Use
  Company Number: US-BRISTOL-MYERS SQUIBB COMPANY-14762629

PATIENT
  Sex: Female

DRUGS (2)
  1. GLUCOPHAGE XR [Suspect]
     Indication: POLYCYSTIC OVARIES
     Route: 048
     Dates: end: 20090101
  2. SPIRONOLACTONE [Concomitant]

REACTIONS (2)
  - DYSGEUSIA [None]
  - PARAESTHESIA [None]
